FAERS Safety Report 5094605-5 (Version None)
Quarter: 2006Q3

REPORT INFORMATION
  Report Type: 
  Country: None (occurrence: None)
  Receive Date: 20060830
  Receipt Date: 20060814
  Transmission Date: 20061208
  Serious: Yes (Hospitalization, Other)
  Sender: FDA-Public Use
  Company Number: US200608003122

PATIENT
  Age: 39 Year
  Sex: Male
  Weight: 82.5 kg

DRUGS (4)
  1. ZYPREXA [Suspect]
     Indication: PARANOIA
     Dosage: 20 MG
     Dates: start: 19990201, end: 20050101
  2. SEROQUEL [Concomitant]
  3. DEPAKOTE [Concomitant]
  4. WELLBUTRIN [Concomitant]

REACTIONS (10)
  - BACK PAIN [None]
  - BLOOD CHOLESTEROL INCREASED [None]
  - DIABETES MELLITUS [None]
  - HYPERTENSION [None]
  - HYPOAESTHESIA [None]
  - METABOLIC DISORDER [None]
  - POLYDIPSIA [None]
  - POLYURIA [None]
  - SPINAL COLUMN STENOSIS [None]
  - VISION BLURRED [None]
